FAERS Safety Report 6093798-0 (Version None)
Quarter: 2009Q1

REPORT INFORMATION
  Report Type: 
  Country: None (occurrence: None)
  Receive Date: 20090223
  Receipt Date: 20090120
  Transmission Date: 20090719
  Serious: Yes (Disabling)
  Sender: FDA-Public Use
  Company Number: 000237

PATIENT
  Age: 37 Year
  Sex: Male

DRUGS (3)
  1. PARACETAMOL WITH CODEINE PHOSPHATE (PARACETAMOL WITH CODEINE) [Suspect]
     Indication: BACK PAIN
     Dosage: (100X8MG OR 70X30MG OF CODEINE AND 24X300MG PLUS 100 OR 70X300MG OF PARACETAMOL DAILY ORAL)
     Route: 048
  2. CAFFEINE [Concomitant]
  3. CHLORZOXAZONE [Concomitant]

REACTIONS (1)
  - DEAFNESS [None]
